FAERS Safety Report 5739901-0 (Version None)
Quarter: 2008Q2

REPORT INFORMATION
  Report Type: 
  Country: None (occurrence: None)
  Receive Date: 20080516
  Receipt Date: 20080505
  Transmission Date: 20081010
  Serious: Yes (Other)
  Sender: FDA-Public Use
  Company Number: US-JNJFOC-20080402846

PATIENT
  Sex: Male
  Weight: 97.52 kg

DRUGS (5)
  1. TOPAMAX [Suspect]
     Route: 048
  2. TOPAMAX [Suspect]
     Indication: MIGRAINE PROPHYLAXIS
     Dosage: 25 MG STRENGTH TABLETS
     Route: 048
  3. NEURONTIN [Concomitant]
     Indication: SCHIZOPHRENIA
     Route: 048
  4. NAVANE [Concomitant]
     Route: 048
  5. PREVACID [Concomitant]
     Indication: GASTRIC DISORDER
     Route: 048

REACTIONS (3)
  - ANGER [None]
  - HOSTILITY [None]
  - HYPOAESTHESIA [None]
